FAERS Safety Report 5332425-4 (Version None)
Quarter: 2007Q2

REPORT INFORMATION
  Report Type: 
  Country: None (occurrence: None)
  Receive Date: 20070523
  Receipt Date: 20070514
  Transmission Date: 20071010
  Serious: Yes (Other)
  Sender: FDA-Public Use
  Company Number: AT-JNJFOC-20070501297

PATIENT
  Sex: Male

DRUGS (1)
  1. REMINYL RETARD [Suspect]
     Indication: DEMENTIA

REACTIONS (1)
  - ATRIOVENTRICULAR BLOCK COMPLETE [None]
